FAERS Safety Report 7512385-8 (Version None)
Quarter: 2011Q2

REPORT INFORMATION
  Report Type: 
  Country: None (occurrence: None)
  Receive Date: 20110531
  Receipt Date: 20110524
  Transmission Date: 20111010
  Serious: Yes (Other)
  Sender: FDA-Public Use
  Company Number: US-SANOFI-AVENTIS-2011SA027738

PATIENT
  Age: 55 Year
  Sex: Male
  Weight: 112.03 kg

DRUGS (4)
  1. NEXIUM [Concomitant]
  2. ASPIRIN [Concomitant]
  3. MULTAQ [Suspect]
     Route: 048
     Dates: start: 20111227, end: 20110218
  4. SIMVASTATIN [Concomitant]

REACTIONS (1)
  - SUICIDAL IDEATION [None]
